FAERS Safety Report 13530341 (Version 1)
Quarter: 2017Q2

REPORT INFORMATION
  Report Type: Spontaneous
  Country: FR (occurrence: FR)
  Receive Date: 20170509
  Receipt Date: 20170509
  Transmission Date: 20170830
  Serious: Yes (Hospitalization)
  Sender: FDA-Public Use
  Company Number: FR-ROCHE-1931657

PATIENT
  Age: 46 Year
  Sex: Female

DRUGS (2)
  1. CYMEVAN [Suspect]
     Active Substance: GANCICLOVIR
     Indication: INFECTION
     Route: 065
     Dates: start: 20170406, end: 20170420
  2. ROVALCYTE [Suspect]
     Active Substance: VALGANCICLOVIR HYDROCHLORIDE
     Indication: INFECTION
     Dosage: FILM-COATED TABLET
     Route: 048
     Dates: start: 20170309, end: 20170406

REACTIONS (2)
  - Pancytopenia [Not Recovered/Not Resolved]
  - Neutropenia [Not Recovered/Not Resolved]

NARRATIVE: CASE EVENT DATE: 20170406
